FAERS Safety Report 16989544 (Version 1)
Quarter: 2019Q4

REPORT INFORMATION
  Report Type: Spontaneous
  Country: FR (occurrence: FR)
  Receive Date: 20191104
  Receipt Date: 20191104
  Transmission Date: 20200122
  Serious: Yes (Other)
  Sender: FDA-Public Use
  Company Number: FR-PFIZER INC-2019470855

PATIENT
  Age: 72 Year
  Sex: Female

DRUGS (5)
  1. DALACINE [Suspect]
     Active Substance: CLINDAMYCIN
     Indication: INFECTED BITE
     Dosage: 1800 MG, DAILY
     Route: 048
     Dates: start: 20190906, end: 20190922
  2. PRAVASTATIN SODIUM. [Concomitant]
     Active Substance: PRAVASTATIN SODIUM
     Dosage: 40 MG, 1X/DAY
     Route: 048
  3. DOXY [DOXYCYCLINE HYCLATE] [Suspect]
     Active Substance: DOXYCYCLINE HYCLATE
     Indication: INFECTED BITE
     Dosage: 200 MG, DAILY
     Route: 048
     Dates: start: 20190905, end: 20190909
  4. TAVANIC [Suspect]
     Active Substance: LEVOFLOXACIN
     Indication: INFECTED BITE
     Dosage: 750 MG, DAILY
     Route: 048
     Dates: start: 20190910, end: 20190922
  5. LEVOTHYROX [Concomitant]
     Active Substance: LEVOTHYROXINE
     Dosage: UNK
     Route: 048

REACTIONS (2)
  - Cholestasis [Recovered/Resolved]
  - Condition aggravated [Recovered/Resolved]

NARRATIVE: CASE EVENT DATE: 20190917
